FAERS Safety Report 9321397 (Version 1)
Quarter: 2013Q2

REPORT INFORMATION
  Report Type: Spontaneous
  Country: FI (occurrence: None)
  Receive Date: 20130528
  Receipt Date: 20130528
  Transmission Date: 20140414
  Serious: Yes (Death, Other)
  Sender: FDA-Public Use
  Company Number: 2013P1006161

PATIENT
  Age: 62 Year
  Sex: Female
  Weight: 93 kg

DRUGS (1)
  1. LIDOCAINE [Suspect]
     Indication: ARTHROSCOPY

REACTIONS (7)
  - Headache [None]
  - Musculoskeletal stiffness [None]
  - Visual impairment [None]
  - Cerebral ischaemia [None]
  - Cerebral infarction [None]
  - Brain abscess [None]
  - Intraspinal abscess [None]
